FAERS Safety Report 9603023 (Version 1)
Quarter: 2013Q4

REPORT INFORMATION
  Report Type: Spontaneous
  Country: IT (occurrence: IT)
  Receive Date: 20131007
  Receipt Date: 20131007
  Transmission Date: 20140711
  Serious: Yes (Other)
  Sender: FDA-Public Use
  Company Number: IT-BAYER-2013-117065

PATIENT
  Age: 65 Year
  Sex: Male

DRUGS (6)
  1. CIPROFLOXACIN [Suspect]
     Indication: PERITONITIS BACTERIAL
     Dosage: UNK
     Route: 042
  2. CIPROFLOXACIN [Suspect]
     Indication: PSEUDOMONAS INFECTION
  3. CEFAZOLIN [Suspect]
     Indication: PERITONITIS BACTERIAL
     Dosage: UNK
     Route: 033
  4. CEFAZOLIN [Suspect]
     Indication: PSEUDOMONAS INFECTION
  5. TOBRAMYCIN [Suspect]
     Indication: PERITONITIS BACTERIAL
     Dosage: UNK
     Route: 033
  6. TOBRAMYCIN [Suspect]
     Indication: PSEUDOMONAS INFECTION

REACTIONS (4)
  - Peritonitis bacterial [Recovered/Resolved]
  - Vomiting [Recovered/Resolved]
  - Abdominal pain [Recovered/Resolved]
  - Drug ineffective [None]
